FAERS Safety Report 15670131 (Version 6)
Quarter: 2019Q3

REPORT INFORMATION
  Report Type: Report from Study
  Country: DK (occurrence: DK)
  Receive Date: 20181129
  Receipt Date: 20190918
  Transmission Date: 20191004
  Serious: Yes (Hospitalization)
  Sender: FDA-Public Use
  Company Number: DK-ROCHE-2212029

PATIENT
  Age: 68 Year
  Sex: Female
  Weight: 58.7 kg

DRUGS (13)
  1. ATEZOLIZUMAB. [Suspect]
     Active Substance: ATEZOLIZUMAB
     Indication: NON-SMALL CELL LUNG CANCER METASTATIC
     Dosage: DATE OF MOST RECENT DOSE (1200 MG) OF ATEZOLIZUMAB PRIOR TO PNEUMONITIS ONSET: 15/OCT/2018 (AT 11.10
     Route: 042
     Dates: start: 20180903
  2. DOMPERIDON [DOMPERIDONE] [Concomitant]
     Route: 048
     Dates: start: 20181012
  3. ONDANSETRON [Concomitant]
     Active Substance: ONDANSETRON
     Route: 048
     Dates: start: 20170321, end: 20181012
  4. PARACETAMOL [Concomitant]
     Active Substance: ACETAMINOPHEN
     Route: 048
     Dates: start: 20160926
  5. AMLODIPINE [Concomitant]
     Active Substance: AMLODIPINE BESYLATE
     Route: 048
     Dates: end: 20140410
  6. ENALAPRIL [Concomitant]
     Active Substance: ENALAPRIL
     Route: 048
     Dates: start: 20151027
  7. MAGNESIUM OXIDE. [Concomitant]
     Active Substance: MAGNESIUM OXIDE
     Route: 048
     Dates: start: 20181012
  8. PANTOPRAZOL [PANTOPRAZOLE] [Concomitant]
     Active Substance: PANTOPRAZOLE
     Route: 048
     Dates: start: 20150603
  9. PREDNISOLON [PREDNISOLONE] [Concomitant]
     Active Substance: PREDNISOLONE
     Indication: SINUSITIS
     Route: 048
     Dates: start: 20180913, end: 20180918
  10. AMOXICILLIN. [Concomitant]
     Active Substance: AMOXICILLIN
     Indication: SINUSITIS
     Route: 065
     Dates: start: 20180913, end: 20180921
  11. OXYCONTIN [Concomitant]
     Active Substance: OXYCODONE HYDROCHLORIDE
     Route: 048
     Dates: start: 20181012
  12. OXYCODON [Concomitant]
     Active Substance: OXYCODONE
     Route: 048
     Dates: start: 20170406
  13. LAXOBERAL [Concomitant]
     Active Substance: SODIUM PICOSULFATE
     Route: 048
     Dates: start: 20181012

REACTIONS (3)
  - Blood alkaline phosphatase increased [Unknown]
  - Gamma-glutamyltransferase increased [Unknown]
  - Pneumonitis [Recovered/Resolved]

NARRATIVE: CASE EVENT DATE: 20181018
